FAERS Safety Report 13078087 (Version 2)
Quarter: 2017Q1

REPORT INFORMATION
  Report Type: Spontaneous
  Country: DK (occurrence: DK)
  Receive Date: 20170102
  Receipt Date: 20170105
  Transmission Date: 20170428
  Serious: Yes (Hospitalization, Other)
  Sender: FDA-Public Use
  Company Number: DK-ABBVIE-16K-044-1825827-00

PATIENT
  Age: 82 Year
  Sex: Female

DRUGS (3)
  1. COMBAR [Concomitant]
     Indication: DEPRESSION
     Dates: start: 20150801
  2. HUMIRA [Suspect]
     Active Substance: ADALIMUMAB
     Indication: RHEUMATOID ARTHRITIS
     Route: 058
     Dates: start: 20140501, end: 20161221
  3. AURBINDO [Concomitant]
     Indication: OSTEOPOROSIS
     Dates: start: 20140211

REACTIONS (4)
  - Infectious pleural effusion [Not Recovered/Not Resolved]
  - Fatigue [Not Recovered/Not Resolved]
  - Infection [Not Recovered/Not Resolved]
  - Colon cancer metastatic [Unknown]

NARRATIVE: CASE EVENT DATE: 2016
